FAERS Safety Report 23803239 (Version 5)
Quarter: 2024Q3

REPORT INFORMATION
  Report Type: Spontaneous
  Country: US (occurrence: US)
  Receive Date: 20240501
  Receipt Date: 20240701
  Transmission Date: 20241017
  Serious: No
  Sender: PFIZER
  Company Number: US-PFIZER INC-202400095214

PATIENT
  Age: 40 Year
  Sex: Female

DRUGS (1)
  1. NYVEPRIA [Suspect]
     Active Substance: PEGFILGRASTIM-APGF
     Dosage: 6MG EVERY 3 WEEKS SUBCUTANEOUSLY
     Route: 058
     Dates: start: 202402

REACTIONS (5)
  - Device leakage [Unknown]
  - Device issue [Unknown]
  - Accidental exposure to product [Unknown]
  - Exposure via skin contact [Unknown]
  - Drug dose omission by device [Unknown]

NARRATIVE: CASE EVENT DATE: 20240423
